FAERS Safety Report 6530399 (Version 4)
Quarter: 2020Q3

REPORT INFORMATION
  Report Type: Report from Study
  Country: DE (occurrence: DE)
  Receive Date: 20080118
  Receipt Date: 20080620
  Transmission Date: 20201104
  Serious: Yes (Hospitalization, Disabling)
  Sender: FDA-Public Use
  Company Number: DE-ROCHE-540077

PATIENT
  Age: 75 Year
  Sex: Female
  Weight: 84 kg

DRUGS (14)
  1. IBANDRONIC ACID. [Suspect]
     Active Substance: IBANDRONIC ACID
     Indication: BREAST CANCER
     Route: 048
     Dates: start: 20071121
  2. ZOFRAN [Concomitant]
     Active Substance: ONDANSETRON HYDROCHLORIDE
     Indication: NAUSEA
     Dosage: FRQUENCY REPORTED AS ^IF REQUIRED^. ROUTE: D
  3. ACTRAPID [Concomitant]
     Active Substance: INSULIN HUMAN
     Dosage: DOSE REPORTED AS 8 IE THRICE DAILY.
     Dates: start: 20071225
  4. VERAPAMIL HYDROCHLORIDE. [Concomitant]
     Active Substance: VERAPAMIL HYDROCHLORIDE
     Dosage: GIVEN IN THE MORNING AND IN THE EVENING (1?0?1).
  5. CO?DIOVAN [Concomitant]
     Active Substance: HYDROCHLOROTHIAZIDE\VALSARTAN
     Dosage: DOSE REPORTED AS 160/25 MG. GIVEN IN THE MORNING (1?0?0).
  6. NEBIVOLOL. [Concomitant]
     Active Substance: NEBIVOLOL
     Dosage: GIVEN IN THE MORNING AND IN THE EVENING (1/2?0?1/2).
  7. SOLIFENACIN SUCCINATE. [Concomitant]
     Active Substance: SOLIFENACIN SUCCINATE
     Dosage: DRUG REPORTED AS VESIKUR. GIVEN IN THE MORNING (1?0?0).
  8. ASPIRIN. [Concomitant]
     Active Substance: ASPIRIN
     Dosage: GIVEN IN THE MORNING (1?0?0)
  9. LEVOTHYROXINE SODIUM. [Concomitant]
     Active Substance: LEVOTHYROXINE SODIUM
     Indication: HYPERTHYROIDISM
     Dosage: GIVEN IN THE MORNING (1?0?0).
  10. LANTUS [Concomitant]
     Active Substance: INSULIN GLARGINE
     Dosage: DOSE REPORTED AS 10 IE ONCE DAILY.
     Dates: start: 20071225
  11. CAPECITABINE. [Suspect]
     Active Substance: CAPECITABINE
     Dosage: GIVEN AS 2000 MG/M2 IN TWO DIVIDED DOSES ON DAYS 1?14 OF 21 DAY CYCLE AS PER PROTOCOL.
     Route: 048
     Dates: start: 20071121, end: 20080123
  12. MOXONIDINE [Concomitant]
     Active Substance: MOXONIDINE
     Dosage: GIVEN IN THE MORNING AND IN THE EVENING (1?0?1).
  13. CO?DIOVAN [Concomitant]
     Active Substance: HYDROCHLOROTHIAZIDE\VALSARTAN
     Dosage: DOSE REPORTED AS 160/25 MG. GIVEN IN THE MORNING (1?0?0).
  14. NEXIUM [Concomitant]
     Active Substance: ESOMEPRAZOLE MAGNESIUM
     Dosage: GIVEN IN THE MORNING AND AT NIGHT (1?0?0?1).

REACTIONS (2)
  - Type 1 diabetes mellitus [Recovered/Resolved]
  - Palmar-plantar erythrodysaesthesia syndrome [Recovered/Resolved]

NARRATIVE: CASE EVENT DATE: 20071225
